FAERS Safety Report 19203729 (Version 4)
Quarter: 2021Q2

REPORT INFORMATION
  Report Type: Spontaneous
  Country: IT (occurrence: IT)
  Receive Date: 20210503
  Receipt Date: 20210626
  Transmission Date: 20210717
  Serious: Yes (Other)
  Sender: FDA-Public Use
  Company Number: IT-AUROBINDO-AUR-APL-2021-017832

PATIENT
  Age: 60 Year
  Sex: Female

DRUGS (6)
  1. PRALSETINIB. [Interacting]
     Active Substance: PRALSETINIB
     Dosage: 300 MILLIGRAM
     Dates: start: 20201124, end: 20201206
  2. CIPROFLOXACIN. [Interacting]
     Active Substance: CIPROFLOXACIN
     Indication: EVIDENCE BASED TREATMENT
     Dosage: 500 MILLIGRAM, TWO TIMES A DAY
     Route: 065
     Dates: start: 20201025, end: 20201105
  3. CIPROFLOXACIN. [Suspect]
     Active Substance: CIPROFLOXACIN
     Indication: PYREXIA
     Dosage: 1000 MILLIGRAM, ONCE A DAY
     Route: 065
     Dates: start: 20201025, end: 20201105
  4. PRALSETINIB. [Interacting]
     Active Substance: PRALSETINIB
     Indication: NON-SMALL CELL LUNG CANCER METASTATIC
     Dosage: 400 MILLIGRAM, CYCLICAL
     Route: 065
     Dates: start: 20200814, end: 20201029
  5. PRALSETINIB. [Interacting]
     Active Substance: PRALSETINIB
     Dosage: 200 MILLIGRAM
     Route: 065
     Dates: start: 20201112, end: 20201123
  6. PRALSETINIB. [Interacting]
     Active Substance: PRALSETINIB
     Dosage: 400 MILLIGRAM
     Dates: start: 20201207

REACTIONS (8)
  - Neutropenia [Recovered/Resolved]
  - Toxicity to various agents [Recovered/Resolved]
  - Potentiating drug interaction [Unknown]
  - Asthenia [Recovered/Resolved]
  - Thrombocytopenia [Recovered/Resolved]
  - Labelled drug-drug interaction medication error [Unknown]
  - Febrile neutropenia [Recovered/Resolved]
  - Drug interaction [Recovered/Resolved]

NARRATIVE: CASE EVENT DATE: 202010
